FAERS Safety Report 8495498-6 (Version None)
Quarter: 2012Q3

REPORT INFORMATION
  Report Type: 
  Country: None (occurrence: None)
  Receive Date: 20120709
  Receipt Date: 20120628
  Transmission Date: 20120928
  Serious: Yes (Death, Hospitalization)
  Sender: FDA-Public Use
  Company Number: US-ACTELION-A-US2012-60571

PATIENT

DRUGS (7)
  1. CALCIUM CHANNEL BLOCKERS [Concomitant]
  2. TRACLEER [Suspect]
     Indication: PULMONARY ARTERIAL HYPERTENSION
     Dosage: UNK
     Route: 048
     Dates: start: 20090506, end: 20120609
  3. OXYGEN [Concomitant]
  4. REMODULIN [Concomitant]
  5. EPOPROSTENOL SODIUM [Concomitant]
     Indication: PULMONARY ARTERIAL HYPERTENSION
     Route: 042
  6. ASPIRIN [Concomitant]
  7. NITROGLYCERIN [Concomitant]

REACTIONS (6)
  - DYSPNOEA [None]
  - ANAEMIA [None]
  - CHRONIC RIGHT VENTRICULAR FAILURE [None]
  - GASTROINTESTINAL HAEMORRHAGE [None]
  - CHEST PAIN [None]
  - CARDIAC FAILURE CONGESTIVE [None]
